FAERS Safety Report 9304966 (Version 1)
Quarter: 2013Q2

REPORT INFORMATION
  Report Type: Spontaneous
  Country: US (occurrence: None)
  Receive Date: 20130521
  Receipt Date: 20130521
  Transmission Date: 20140414
  Serious: No
  Sender: FDA-Public Use
  Company Number: None

PATIENT
  Age: 32 Year
  Sex: Female
  Weight: 90.72 kg

DRUGS (1)
  1. CYMBALTA [Suspect]
     Indication: GENERALISED ANXIETY DISORDER
     Dosage: 4.5 YEARS USE ON 90 MG/ DAY LESS THAN 20 MG DAILY PO
     Route: 048

REACTIONS (1)
  - Drug withdrawal syndrome [None]
